FAERS Safety Report 8951390 (Version 1)
Quarter: 2012Q4

REPORT INFORMATION
  Report Type: 
  Country: MT (occurrence: MT)
  Receive Date: 20121207
  Receipt Date: 20121207
  Transmission Date: 20130627
  Serious: Yes (Other)
  Sender: FDA-Public Use
  Company Number: MT-ABBOTT-12P-103-1015649-00

PATIENT
  Age: 13 Year
  Sex: Male

DRUGS (2)
  1. KLACID [Suspect]
     Indication: TONSILLITIS
     Route: 048
     Dates: start: 20120915, end: 20120916
  2. BRUFEN [Concomitant]
     Indication: PRODUCT USED FOR UNKNOWN INDICATION
     Route: 048

REACTIONS (4)
  - Dyspnoea [Recovered/Resolved]
  - Rash macular [Recovered/Resolved]
  - Rash generalised [Recovered/Resolved]
  - Pruritus [Recovered/Resolved]
